FAERS Safety Report 18448984 (Version 2)
Quarter: 2020Q4

REPORT INFORMATION
  Report Type: Report from Study
  Country: US (occurrence: US)
  Receive Date: 20201030
  Receipt Date: 20201106
  Transmission Date: 20210114
  Serious: Yes (Death)
  Sender: FDA-Public Use
  Company Number: US-PFIZER INC-2020415629

PATIENT
  Age: 47 Year
  Sex: Male
  Weight: 77.3 kg

DRUGS (2)
  1. PEMBROLIZUMAB. [Suspect]
     Active Substance: PEMBROLIZUMAB
     Indication: RECTAL CANCER
     Dosage: 200 MG, EVERY 21 DAYS
     Route: 042
     Dates: start: 20200730, end: 20200908
  2. BINIMETINIB [Suspect]
     Active Substance: BINIMETINIB
     Indication: RECTAL CANCER
     Dosage: 30 MG, DAILY
     Route: 048
     Dates: start: 20200721, end: 20201001

REACTIONS (1)
  - Cardiac arrest [Fatal]

NARRATIVE: CASE EVENT DATE: 20201022
